FAERS Safety Report 19957697 (Version 1)
Quarter: 2021Q4

REPORT INFORMATION
  Report Type: Spontaneous
  Country: PT (occurrence: PT)
  Receive Date: 20211014
  Receipt Date: 20211014
  Transmission Date: 20220303
  Serious: Yes (Life-Threatening, Other)
  Sender: FDA-Public Use
  Company Number: PT-ABBVIE-21K-130-4120009-00

PATIENT
  Age: 13 Year
  Sex: Male

DRUGS (1)
  1. VALPROIC ACID [Suspect]
     Active Substance: VALPROIC ACID
     Indication: Epilepsy
     Route: 065

REACTIONS (5)
  - Hyperammonaemic encephalopathy [Recovering/Resolving]
  - Hyperammonaemia [Recovering/Resolving]
  - Hyperammonaemic encephalopathy [Recovering/Resolving]
  - Disorientation [Recovering/Resolving]
  - Dysarthria [Recovering/Resolving]
